FAERS Safety Report 21240191 (Version 1)
Quarter: 2022Q3

REPORT INFORMATION
  Report Type: Spontaneous
  Country: US (occurrence: None)
  Receive Date: 20220819
  Receipt Date: 20220819
  Transmission Date: 20221027
  Serious: No
  Sender: FDA-Public Use
  Company Number: None

PATIENT
  Sex: Female

DRUGS (1)
  1. ENBREL [Suspect]
     Active Substance: ETANERCEPT
     Indication: Guttate psoriasis
     Dosage: FREQUENCY : WEEKLY;?
     Route: 042
     Dates: start: 20210616

REACTIONS (2)
  - Blister infected [None]
  - Impaired healing [None]
